FAERS Safety Report 23330077 (Version 6)
Quarter: 2025Q1

REPORT INFORMATION
  Report Type: Spontaneous
  Country: US (occurrence: US)
  Receive Date: 20231222
  Receipt Date: 20250215
  Transmission Date: 20250408
  Serious: Yes (Other)
  Sender: AMGEN
  Company Number: US-AMGEN-USASP2023224660

PATIENT
  Age: 63 Year
  Sex: Female

DRUGS (25)
  1. OTEZLA [Suspect]
     Active Substance: APREMILAST
     Indication: Psoriatic arthropathy
     Dosage: 30 MILLIGRAM, BID
     Route: 048
  2. OTEZLA [Suspect]
     Active Substance: APREMILAST
     Dosage: 30 MILLIGRAM, BID
     Route: 048
     Dates: start: 20231214
  3. PREDNISONE [Suspect]
     Active Substance: PREDNISONE
     Indication: Product used for unknown indication
     Route: 065
  4. PREDNISONE [Suspect]
     Active Substance: PREDNISONE
     Route: 065
  5. AMITRIPTYLINE [Concomitant]
     Active Substance: AMITRIPTYLINE
  6. BISOPROLOL FUMARATE [Concomitant]
     Active Substance: BISOPROLOL FUMARATE
  7. BUSPIRONE [Concomitant]
     Active Substance: BUSPIRONE HYDROCHLORIDE
  8. CELECOXIB [Concomitant]
     Active Substance: CELECOXIB
  9. COSENTYX [Concomitant]
     Active Substance: SECUKINUMAB
  10. ESCITALOPRAM [Concomitant]
     Active Substance: ESCITALOPRAM OXALATE
  11. GEMFIBROZIL [Concomitant]
     Active Substance: GEMFIBROZIL
  12. HUMIRA [Concomitant]
     Active Substance: ADALIMUMAB
  13. LEVOTHYROXINE [Concomitant]
     Active Substance: LEVOTHYROXINE
  14. OMEPRAZOLE [Concomitant]
     Active Substance: OMEPRAZOLE
  15. OXYBUTYNIN [Concomitant]
     Active Substance: OXYBUTYNIN
  16. PENNSAID [Concomitant]
     Active Substance: DICLOFENAC SODIUM
  17. TRAZODONE [Concomitant]
     Active Substance: TRAZODONE HYDROCHLORIDE
  18. HYDROCHLOROTHIAZIDE\TRIAMTERENE [Concomitant]
     Active Substance: HYDROCHLOROTHIAZIDE\TRIAMTERENE
  19. RANOLAZINE [Concomitant]
     Active Substance: RANOLAZINE
     Route: 065
  20. TIZANIDINE [Concomitant]
     Active Substance: TIZANIDINE
     Route: 065
  21. ESTRADIOL [Concomitant]
     Active Substance: ESTRADIOL
  22. FLUOCINONIDE [Concomitant]
     Active Substance: FLUOCINONIDE
  23. GABAPENTIN [Concomitant]
     Active Substance: GABAPENTIN
  24. LETROZOLE [Concomitant]
     Active Substance: LETROZOLE
  25. NORTRIPTYLINE [Concomitant]
     Active Substance: NORTRIPTYLINE

REACTIONS (7)
  - Psoriatic arthropathy [Not Recovered/Not Resolved]
  - Feeling jittery [Unknown]
  - Nervousness [Unknown]
  - Psoriasis [Not Recovered/Not Resolved]
  - Postoperative wound infection [Not Recovered/Not Resolved]
  - Product dose omission issue [Unknown]
  - Therapy non-responder [Unknown]

NARRATIVE: CASE EVENT DATE: 20231214
